FAERS Safety Report 9255129 (Version 1)
Quarter: 2013Q2

REPORT INFORMATION
  Report Type: Spontaneous
  Country: TR (occurrence: TR)
  Receive Date: 20130425
  Receipt Date: 20130425
  Transmission Date: 20140414
  Serious: Yes (Hospitalization)
  Sender: FDA-Public Use
  Company Number: TR-ELI_LILLY_AND_COMPANY-TR201304006656

PATIENT
  Age: 23 Year
  Sex: Female
  Weight: 69 kg

DRUGS (21)
  1. HUMULIN REGULAR [Suspect]
     Indication: BLOOD GLUCOSE INCREASED
     Dosage: 6 U, QD
  2. HUMULIN REGULAR [Suspect]
     Dosage: 4 U, QD
  3. HUMULIN REGULAR [Suspect]
     Dosage: 4 U, QD
  4. HUMULIN REGULAR [Suspect]
     Dosage: 16 U, UNKNOWN
  5. HUMULIN NPH [Suspect]
     Indication: BLOOD GLUCOSE INCREASED
     Dosage: 6 U, QD
  6. NIDILAT [Concomitant]
     Indication: BLOOD PRESSURE
     Dosage: 40 MG, BID
  7. NITROFURANTOIN [Concomitant]
     Dosage: 50 MG, TID
  8. OXYGEN [Concomitant]
     Dosage: 100 %, UNKNOWN
  9. OXYGEN [Concomitant]
     Dosage: 33 %, UNKNOWN
  10. PROPOFOL [Concomitant]
     Indication: INDUCTION OF ANAESTHESIA
     Dosage: 2 MG/KG, UNK
  11. SUCCINYLCHOLINE [Concomitant]
     Indication: INDUCTION OF ANAESTHESIA
     Dosage: 1 MG/KG, UNK
  12. DESFLURANE [Concomitant]
     Indication: ANAESTHESIA
     Dosage: 3 %, UNKNOWN
  13. NITROUS OXIDE W/OXYGEN [Concomitant]
     Indication: ANAESTHESIA
     Dosage: 50 %, UNKNOWN
  14. FENTANYL [Concomitant]
     Dosage: .001 MG/KG, UNKNOWN
     Route: 042
  15. DEXTROSE [Concomitant]
     Dosage: 1000 ML, UNKNOWN
     Route: 042
  16. OXYTOCIN [Concomitant]
     Dosage: 20 IU, UNKNOWN
     Route: 042
  17. NACL [Concomitant]
     Dosage: 1000 ML, UNKNOWN
     Route: 042
  18. ATRACURIUM [Concomitant]
     Dosage: 10 MG, UNKNOWN
     Route: 042
  19. NEOSTIGMINE [Concomitant]
     Dosage: 1 MG, UNKNOWN
  20. ATROPINE [Concomitant]
     Dosage: 0.5 MG, UNKNOWN
  21. DICLOFENAC SODIUM [Concomitant]
     Indication: ANALGESIC THERAPY
     Dosage: 20 MG, UNKNOWN

REACTIONS (2)
  - Premature labour [Unknown]
  - Maternal exposure during pregnancy [Unknown]
